FAERS Safety Report 8911437 (Version 2)
Quarter: 2012Q4

REPORT INFORMATION
  Report Type: 
  Country: US (occurrence: US)
  Receive Date: 20121115
  Receipt Date: 20121227
  Transmission Date: 20130627
  Serious: Yes (Hospitalization)
  Sender: FDA-Public Use
  Company Number: US-GILEAD-2012-0064717

PATIENT
  Sex: Female

DRUGS (2)
  1. LETAIRIS [Suspect]
     Indication: COR PULMONALE CHRONIC
     Dosage: 5 mg, QD
     Route: 048
     Dates: start: 20120912
  2. LETAIRIS [Suspect]
     Indication: PULMONARY ARTERIAL HYPERTENSION

REACTIONS (3)
  - Oxygen saturation decreased [Unknown]
  - Dyspnoea [Unknown]
  - Oedema [Unknown]
